FAERS Safety Report 9450120 (Version 1)
Quarter: 2013Q3

REPORT INFORMATION
  Report Type: Spontaneous
  Country: GB (occurrence: GB)
  Receive Date: 20130809
  Receipt Date: 20130809
  Transmission Date: 20140515
  Serious: Yes (Other)
  Sender: FDA-Public Use
  Company Number: GB-PFIZER INC-2013227521

PATIENT
  Age: 24 Year
  Sex: Female
  Weight: 50 kg

DRUGS (3)
  1. DOXYCYCLINE MONOHYDRATE [Suspect]
     Indication: LOWER RESPIRATORY TRACT INFECTION
     Dosage: 100 MG, 1X/DAY
     Route: 049
  2. PARACETAMOL [Concomitant]
     Dosage: 1000 MG, 2X/DAY
  3. DEPO-PROVERA [Concomitant]
     Dosage: UNK
     Route: 030

REACTIONS (3)
  - Cerebral palsy [Recovered/Resolved]
  - Dyskinesia [Recovered/Resolved]
  - Sleep disorder [Recovered/Resolved]
